FAERS Safety Report 9054800 (Version 1)
Quarter: 2013Q1

REPORT INFORMATION
  Report Type: Spontaneous
  Country: FR (occurrence: FR)
  Receive Date: 20130208
  Receipt Date: 20130208
  Transmission Date: 20140127
  Serious: Yes (Other)
  Sender: FDA-Public Use
  Company Number: PHHY2012FR126864

PATIENT
  Sex: 0

DRUGS (2)
  1. GILENYA [Suspect]
     Indication: MULTIPLE SCLEROSIS
     Route: 048
  2. TYSABRI [Suspect]

REACTIONS (2)
  - Progressive multifocal leukoencephalopathy [Unknown]
  - Lymphocyte count decreased [Unknown]
